FAERS Safety Report 13434473 (Version 1)
Quarter: 2017Q2

REPORT INFORMATION
  Report Type: Spontaneous
  Country: US (occurrence: US)
  Receive Date: 20170412
  Receipt Date: 20170412
  Transmission Date: 20170830
  Serious: Yes (Death, Hospitalization)
  Sender: FDA-Public Use
  Company Number: US-TARO-2017TAR00254

PATIENT
  Age: 81 Year
  Sex: Female

DRUGS (3)
  1. METOPROLOL. [Concomitant]
     Active Substance: METOPROLOL
  2. METHIMAZOLE. [Concomitant]
     Active Substance: METHIMAZOLE
  3. WARFARIN [Suspect]
     Active Substance: WARFARIN
     Indication: ANTICOAGULANT THERAPY

REACTIONS (7)
  - Pericardial haemorrhage [Fatal]
  - Activated partial thromboplastin time prolonged [Fatal]
  - Prothrombin time prolonged [Fatal]
  - Cardiac arrest [Fatal]
  - Multiple organ dysfunction syndrome [Fatal]
  - Cardiac tamponade [Fatal]
  - International normalised ratio increased [Fatal]
